FAERS Safety Report 19474387 (Version 1)
Quarter: 2021Q2

REPORT INFORMATION
  Report Type: Spontaneous
  Country: NL (occurrence: NL)
  Receive Date: 20210629
  Receipt Date: 20210629
  Transmission Date: 20210717
  Serious: Yes (Other)
  Sender: FDA-Public Use
  Company Number: NL-MYLANLABS-2021M1037968

PATIENT
  Sex: Male
  Weight: 79.5 kg

DRUGS (2)
  1. RIVAROXABAN [Interacting]
     Active Substance: RIVAROXABAN
     Indication: PRODUCT USED FOR UNKNOWN INDICATION
     Dosage: 1X DGS, 20MG 1X DGS TABLET
     Dates: start: 201910, end: 20201016
  2. SILDENAFIL MYLAN [Suspect]
     Active Substance: SILDENAFIL CITRATE
     Indication: PRODUCT USED FOR UNKNOWN INDICATION
     Dosage: SPORADISCH GEBRUIK
     Dates: start: 201910, end: 20201016

REACTIONS (3)
  - Drug interaction [Recovered/Resolved]
  - Eye haemorrhage [Recovered/Resolved]
  - Haematuria [Recovered/Resolved]
